FAERS Safety Report 4501815-1 (Version None)
Quarter: 2004Q4

REPORT INFORMATION
  Report Type: 
  Country: None (occurrence: None)
  Receive Date: 20041116
  Receipt Date: 20041021
  Transmission Date: 20050328
  Serious: Yes (Other)
  Sender: FDA-Public Use
  Company Number: 200420533GDDC

PATIENT
  Age: 74 Year
  Sex: Male
  Weight: 79.2 kg

DRUGS (25)
  1. TAXOTERE [Suspect]
     Indication: PROSTATE CANCER
     Route: 042
     Dates: start: 20040401, end: 20040616
  2. PREDNISONE [Suspect]
     Indication: PROSTATE CANCER
     Route: 048
     Dates: start: 20021114, end: 20040512
  3. CITRO-MAG [Concomitant]
     Dosage: DOSE: 15-30
     Route: 048
     Dates: start: 20040101
  4. ACE INHIBITOR NOS [Concomitant]
     Route: 048
     Dates: start: 20031101
  5. MEGASTROL                               /BRA/ [Concomitant]
     Route: 048
     Dates: start: 20040121
  6. ZOPICLONE [Concomitant]
     Route: 048
     Dates: start: 20030701
  7. METOCHLOPRAMIDE [Concomitant]
     Route: 048
     Dates: start: 20031201
  8. HALIBUT LIVER OIL [Concomitant]
     Route: 048
     Dates: start: 19930101
  9. VITAMIN A [Concomitant]
     Route: 048
     Dates: start: 19930101
  10. VITAMIN D [Concomitant]
     Route: 048
     Dates: start: 19930101
  11. VITAMIN C [Concomitant]
     Route: 048
     Dates: start: 19930101
  12. VITAMIN E [Concomitant]
     Route: 048
     Dates: start: 19930101
  13. ALLOPURINOL [Concomitant]
     Route: 048
     Dates: start: 19740101
  14. ALPHAGAN [Concomitant]
     Route: 031
     Dates: start: 19990101
  15. XALATAN [Concomitant]
     Route: 031
     Dates: start: 20010101
  16. EPREX [Concomitant]
     Route: 048
     Dates: start: 20020101
  17. DILAUDID [Concomitant]
     Dosage: DOSE: 2-4
     Route: 048
     Dates: start: 20031001
  18. SENNA [Concomitant]
     Route: 048
     Dates: start: 20040101
  19. COLACE [Concomitant]
     Route: 048
     Dates: start: 20040101
  20. DILANTIN [Concomitant]
     Route: 048
     Dates: start: 20040404, end: 20040406
  21. ZOFRAN [Concomitant]
     Route: 042
     Dates: start: 20040331
  22. ZOLADEX [Concomitant]
     Dates: start: 19980330, end: 20030709
  23. CALCIUM WITH VITAMIN D [Concomitant]
     Route: 048
     Dates: start: 19930101
  24. ASPIRIN [Concomitant]
     Route: 048
     Dates: start: 20031101, end: 20040707
  25. ELIGARD                                 /USA/ [Concomitant]
     Dates: start: 20040225

REACTIONS (1)
  - ATRIAL THROMBOSIS [None]
